FAERS Safety Report 16839564 (Version 1)
Quarter: 2019Q3

REPORT INFORMATION
  Report Type: Spontaneous
  Country: US (occurrence: US)
  Receive Date: 20190923
  Receipt Date: 20190923
  Transmission Date: 20191005
  Serious: No
  Sender: FDA-Public Use
  Company Number: US-PFIZER INC-2019408183

PATIENT
  Age: 25 Year
  Sex: Female

DRUGS (2)
  1. MARCAINE [Suspect]
     Active Substance: BUPIVACAINE HYDROCHLORIDE
     Dosage: UNK (2ML OF DEXTROSE)
  2. MARCAINE [Suspect]
     Active Substance: BUPIVACAINE HYDROCHLORIDE
     Indication: CAESAREAN SECTION
     Dosage: UNK (2ML OF DEXTROSE)

REACTIONS (1)
  - Drug ineffective [Unknown]
